FAERS Safety Report 8866439 (Version 1)
Quarter: 2012Q4

REPORT INFORMATION
  Report Type: 
  Country: US (occurrence: US)
  Receive Date: 20121025
  Receipt Date: 20121025
  Transmission Date: 20130627
  Serious: Yes (Death, Hospitalization)
  Sender: FDA-Public Use
  Company Number: US-OTSUKA-US-2012-11535

PATIENT
  Age: 76 Year
  Sex: Male
  Weight: 54.42 kg

DRUGS (1)
  1. SAMSCA [Suspect]
     Indication: BLOOD SODIUM ABNORMAL
     Dosage: 2-3 pills a day
     Route: 048
     Dates: start: 2012, end: 20120920

REACTIONS (1)
  - Lung neoplasm malignant [Fatal]
